FAERS Safety Report 4294072-5 (Version None)
Quarter: 2004Q1

REPORT INFORMATION
  Report Type: 
  Country: None (occurrence: None)
  Receive Date: 20040211
  Receipt Date: 20040123
  Transmission Date: 20041129
  Serious: Yes (Hospitalization)
  Sender: FDA-Public Use
  Company Number: GBT040101168

PATIENT
  Age: 37 Year
  Sex: Female

DRUGS (16)
  1. GEMCITABINE HYDROCHLORIDE-IV (GEMCITABINE) [Suspect]
     Indication: OVARIAN CANCER
  2. CARBOPLATIN [Suspect]
     Indication: OVARIAN CANCER
     Dosage: 764 MG/OTHER
     Route: 050
  3. PACLITAXEL [Suspect]
     Indication: OVARIAN CANCER
  4. CO-DANTHRAMER [Concomitant]
  5. DICLOFENAC SODIUM [Concomitant]
  6. PARACETAMOL [Concomitant]
  7. METOCLOPRAMIDE [Concomitant]
  8. CO-PROXAMOL [Concomitant]
  9. MOVICOL [Concomitant]
  10. PREMARIN [Concomitant]
  11. ZYDOL (TRAMADOL HYDROCHLORIDE) [Concomitant]
  12. MEBEVERINE [Concomitant]
  13. FENTANYL [Concomitant]
  14. LEVOPRAMAZIN [Concomitant]
  15. LANSOPRAZOLE [Concomitant]
  16. GAVISCON [Concomitant]

REACTIONS (16)
  - BACTERAEMIA [None]
  - BLOOD CREATININE DECREASED [None]
  - BLOOD MAGNESIUM DECREASED [None]
  - COLD SWEAT [None]
  - CONSTIPATION [None]
  - COUGH [None]
  - DEHYDRATION [None]
  - DIARRHOEA [None]
  - FEBRILE NEUTROPENIA [None]
  - GASTROINTESTINAL DISORDER [None]
  - HAEMOGLOBIN DECREASED [None]
  - HALLUCINATION, VISUAL [None]
  - HYPERHIDROSIS [None]
  - INTESTINAL OBSTRUCTION [None]
  - SKIN DESQUAMATION [None]
  - WHITE BLOOD CELL COUNT DECREASED [None]
